FAERS Safety Report 11873863 (Version 2)
Quarter: 2016Q1

REPORT INFORMATION
  Report Type: Spontaneous
  Country: DE (occurrence: DE)
  Receive Date: 20151229
  Receipt Date: 20160125
  Transmission Date: 20160526
  Serious: Yes (Other)
  Sender: FDA-Public Use
  Company Number: DE-PFIZER INC-2015451640

PATIENT
  Age: 82 Year
  Sex: Female

DRUGS (4)
  1. LYRICA [Suspect]
     Active Substance: PREGABALIN
     Dosage: 300 MG, UNK
     Dates: start: 201111
  2. LYRICA [Suspect]
     Active Substance: PREGABALIN
     Dosage: 75 MG, UNK (2 YEARS)
  3. LYRICA [Suspect]
     Active Substance: PREGABALIN
     Indication: PAIN
     Dosage: 50 MG, UNK
     Dates: start: 2010
  4. LYRICA [Suspect]
     Active Substance: PREGABALIN
     Dosage: 25 MG, UNK (A QUARTER OF ONE YEAR)
     Dates: end: 20151204

REACTIONS (14)
  - Hypertension [Unknown]
  - Feeling hot [Unknown]
  - Headache [Unknown]
  - Burning sensation [Unknown]
  - Blood pressure increased [Unknown]
  - Vision blurred [Unknown]
  - Insomnia [Unknown]
  - Depression [Unknown]
  - Hyperhidrosis [Unknown]
  - Eye irritation [Unknown]
  - Dizziness [Unknown]
  - Malaise [Unknown]
  - Drug withdrawal syndrome [Unknown]
  - Influenza like illness [Unknown]

NARRATIVE: CASE EVENT DATE: 20160118
